FAERS Safety Report 24077814 (Version 1)
Quarter: 2024Q3

REPORT INFORMATION
  Report Type: Report from Study
  Country: GB (occurrence: GB)
  Receive Date: 20240711
  Receipt Date: 20240711
  Transmission Date: 20241017
  Serious: Yes (Other)
  Sender: SANDOZ
  Company Number: GB-002147023-NVSC2020GB124210

PATIENT
  Sex: Male

DRUGS (1)
  1. ERELZI [Suspect]
     Active Substance: ETANERCEPT-SZZS
     Indication: Rheumatoid arthritis
     Dosage: 50 MG, QW AS DIRECTED
     Route: 058

REACTIONS (6)
  - Prostate cancer [Unknown]
  - Peripheral swelling [Recovering/Resolving]
  - Toothache [Unknown]
  - Product dose omission issue [Unknown]
  - Weight increased [Unknown]
  - Pain [Recovering/Resolving]
